FAERS Safety Report 21128620 (Version 2)
Quarter: 2022Q3

REPORT INFORMATION
  Report Type: Other
  Country: US (occurrence: None)
  Receive Date: 20220725
  Receipt Date: 20220802
  Transmission Date: 20221026
  Serious: Yes (Other)
  Sender: FDA-Public Use
  Company Number: US-ROCHE-3144880

PATIENT
  Age: 45 Year
  Sex: Female
  Weight: 79.450 kg

DRUGS (1)
  1. OCREVUS [Suspect]
     Active Substance: OCRELIZUMAB
     Indication: Relapsing-remitting multiple sclerosis
     Dosage: 300 MG ON DAY 1 AND DAY 14 (13/JAN/2022, 27/JAN/2022)?PRESCRIBED AS INFUSE 300MG IV DAY/AND REPEAT I
     Route: 042
     Dates: start: 202201

REACTIONS (2)
  - Herpes ophthalmic [Not Recovered/Not Resolved]
  - Immunoglobulins decreased [Unknown]

NARRATIVE: CASE EVENT DATE: 20220701
